FAERS Safety Report 5275510-8 (Version None)
Quarter: 2007Q1

REPORT INFORMATION
  Report Type: 
  Country: None (occurrence: None)
  Receive Date: 20070326
  Receipt Date: 20070323
  Transmission Date: 20070707
  Serious: Yes (Hospitalization)
  Sender: FDA-Public Use
  Company Number: AU-BRISTOL-MYERS SQUIBB COMPANY-13704937

PATIENT
  Age: 65 Year
  Sex: Male

DRUGS (16)
  1. PACLITAXEL [Suspect]
     Indication: NON-SMALL CELL LUNG CANCER
     Route: 042
     Dates: start: 20070118, end: 20070118
  2. CARBOPLATIN [Suspect]
     Indication: NON-SMALL CELL LUNG CANCER
     Route: 042
     Dates: start: 20070118, end: 20070118
  3. PF-3512676 [Suspect]
     Indication: NON-SMALL CELL LUNG CANCER
     Route: 058
     Dates: start: 20061214, end: 20070125
  4. PANAMAX [Concomitant]
     Route: 048
     Dates: start: 20061101
  5. PROCHLORPERAZINE [Concomitant]
     Route: 048
     Dates: start: 20061101
  6. MAXOLON [Concomitant]
     Route: 048
     Dates: start: 20061116
  7. AMOXICILLIN [Concomitant]
     Route: 048
     Dates: start: 20061207, end: 20061212
  8. ONDANSETRON [Concomitant]
     Route: 042
     Dates: start: 20070125, end: 20070125
  9. DEXAMETHASONE [Concomitant]
     Route: 042
     Dates: start: 20070125, end: 20070125
  10. PROMETHAZINE [Concomitant]
     Route: 042
     Dates: start: 20061207, end: 20061207
  11. RANITIDINE [Concomitant]
     Route: 042
     Dates: start: 20061207, end: 20061207
  12. BACTRIM [Concomitant]
     Route: 048
     Dates: start: 20061214, end: 20061220
  13. MYLANTA [Concomitant]
     Route: 048
     Dates: start: 20061214
  14. COLOXYL + SENNA [Concomitant]
     Route: 048
     Dates: start: 20061228
  15. SODIUM BICARBONATE [Concomitant]
     Route: 048
     Dates: start: 20070104
  16. CHLOROMYCETIN [Concomitant]
     Dates: start: 20070111

REACTIONS (1)
  - DEHYDRATION [None]
